FAERS Safety Report 19486730 (Version 1)
Quarter: 2021Q3

REPORT INFORMATION
  Report Type: Spontaneous
  Country: US (occurrence: US)
  Receive Date: 20210702
  Receipt Date: 20210702
  Transmission Date: 20211014
  Serious: Yes (Death)
  Sender: FDA-Public Use
  Company Number: US-TASMAN PHARMA, INC.-2021TSM00043

PATIENT
  Age: 45 Year
  Sex: Male

DRUGS (1)
  1. VERSACLOZ [Suspect]
     Active Substance: CLOZAPINE
     Dosage: UNK
     Dates: end: 20210505

REACTIONS (1)
  - Death [Fatal]

NARRATIVE: CASE EVENT DATE: 20210505
